FAERS Safety Report 6695068-6 (Version None)
Quarter: 2010Q2

REPORT INFORMATION
  Report Type: 
  Country: None (occurrence: None)
  Receive Date: 20100423
  Receipt Date: 20100414
  Transmission Date: 20101027
  Serious: Yes (Other)
  Sender: FDA-Public Use
  Company Number: PHHY2010BR23173

PATIENT
  Age: 80 Year
  Sex: Male

DRUGS (1)
  1. PARLODEL [Suspect]
     Dosage: 2.5 MG, UNK

REACTIONS (2)
  - MEMORY IMPAIRMENT [None]
  - SURGERY [None]
